FAERS Safety Report 9098789 (Version 1)
Quarter: 2013Q1

REPORT INFORMATION
  Report Type: Other
  Country: IL (occurrence: IL)
  Receive Date: 20130213
  Receipt Date: 20130213
  Transmission Date: 20140127
  Serious: Yes (Other)
  Sender: FDA-Public Use
  Company Number: IL-BRISTOL-MYERS SQUIBB COMPANY-17381260

PATIENT
  Age: 28 Year
  Sex: Female

DRUGS (1)
  1. MITOTANE [Suspect]
     Indication: ADRENOCORTICAL CARCINOMA

REACTIONS (2)
  - Abortion spontaneous [Unknown]
  - Twin pregnancy [Recovered/Resolved]
